FAERS Safety Report 15779379 (Version 1)
Quarter: 2019Q1

REPORT INFORMATION
  Report Type: Spontaneous
  Country: US (occurrence: US)
  Receive Date: 20190101
  Receipt Date: 20190101
  Transmission Date: 20190417
  Serious: Yes (Other)
  Sender: FDA-Public Use
  Company Number: US-GLAXOSMITHKLINE-US2018233386

PATIENT

DRUGS (1)
  1. TUMS [Suspect]
     Active Substance: CALCIUM CARBONATE
     Indication: PRODUCT USED FOR UNKNOWN INDICATION
     Dosage: UNK, QD

REACTIONS (6)
  - Incorrect product administration duration [Unknown]
  - Cardiac operation [Unknown]
  - Blood calcium increased [Unknown]
  - Myocardial infarction [Unknown]
  - Calcinosis [Unknown]
  - Arterial occlusive disease [Unknown]
